FAERS Safety Report 5152627-X (Version None)
Quarter: 2006Q4

REPORT INFORMATION
  Report Type: 
  Country: None (occurrence: None)
  Receive Date: 20061109
  Receipt Date: 20061030
  Transmission Date: 20070319
  Serious: Yes (Hospitalization, Disabling)
  Sender: FDA-Public Use
  Company Number: OSCN-PR-0607S-0200

PATIENT
  Age: 46 Year
  Sex: Male

DRUGS (5)
  1. OMNISCAN [Suspect]
     Indication: DRUG USE FOR UNKNOWN INDICATION
     Dosage: 40 ML, SINGLE DOSE, I.V.
     Route: 042
  2. SIMULECT [Concomitant]
  3. TACROLIMUS [Concomitant]
  4. MYCOPHENOLATE MOFETIL [Concomitant]
  5. PREDNISONE TAB [Concomitant]

REACTIONS (4)
  - ABASIA [None]
  - CHOLESTASIS [None]
  - MUSCULAR WEAKNESS [None]
  - NEPHROGENIC FIBROSING DERMOPATHY [None]
